FAERS Safety Report 6188547-1 (Version None)
Quarter: 2009Q2

REPORT INFORMATION
  Report Type: 
  Country: None (occurrence: None)
  Receive Date: 20090513
  Receipt Date: 20090509
  Transmission Date: 20091009
  Serious: Yes (Other)
  Sender: FDA-Public Use
  Company Number: A0783708A

PATIENT
  Age: 26 Year
  Sex: Female

DRUGS (2)
  1. ALLI [Suspect]
     Route: 048
  2. CELEXA [Concomitant]

REACTIONS (10)
  - ABDOMINAL DISCOMFORT [None]
  - CYANOSIS [None]
  - DIZZINESS [None]
  - FREQUENT BOWEL MOVEMENTS [None]
  - GASTROINTESTINAL DISORDER [None]
  - LOSS OF CONSCIOUSNESS [None]
  - NASOPHARYNGITIS [None]
  - PALLOR [None]
  - PERIPHERAL COLDNESS [None]
  - SKIN DISCOLOURATION [None]
